FAERS Safety Report 7485900-0 (Version None)
Quarter: 2011Q2

REPORT INFORMATION
  Report Type: 
  Country: None (occurrence: None)
  Receive Date: 20110517
  Receipt Date: 20110511
  Transmission Date: 20111010
  Serious: Yes (Hospitalization)
  Sender: FDA-Public Use
  Company Number: FR-BRISTOL-MYERS SQUIBB COMPANY-15739972

PATIENT
  Age: 88 Year
  Sex: Female

DRUGS (1)
  1. COUMADIN [Suspect]
     Indication: PHLEBITIS
     Dosage: 1DF = 1.5 SCORED TABLET PER DAY
     Route: 048
     Dates: start: 20110201, end: 20110318

REACTIONS (2)
  - PROTHROMBIN LEVEL DECREASED [None]
  - HAEMATURIA [None]
